FAERS Safety Report 19576489 (Version 2)
Quarter: 2021Q3

REPORT INFORMATION
  Report Type: Spontaneous
  Country: US (occurrence: US)
  Receive Date: 20210719
  Receipt Date: 20210806
  Transmission Date: 20211014
  Serious: Yes (Hospitalization)
  Sender: FDA-Public Use
  Company Number: US-SUN PHARMACEUTICAL INDUSTRIES LTD-2021R1-298344

PATIENT
  Sex: Female
  Weight: 64.4 kg

DRUGS (4)
  1. LETAIRIS [Concomitant]
     Active Substance: AMBRISENTAN
     Indication: PRODUCT USED FOR UNKNOWN INDICATION
  2. ADCIRCA [Concomitant]
     Active Substance: TADALAFIL
     Indication: PRODUCT USED FOR UNKNOWN INDICATION
     Route: 065
  3. UPTRAVI [Concomitant]
     Active Substance: SELEXIPAG
     Indication: PRODUCT USED FOR UNKNOWN INDICATION
     Route: 065
  4. EPOPROSTENOL. [Suspect]
     Active Substance: EPOPROSTENOL
     Indication: PULMONARY ARTERIAL HYPERTENSION
     Dosage: 8 NG/KG/MIN
     Route: 042
     Dates: start: 20210415

REACTIONS (7)
  - Decreased appetite [Unknown]
  - Vomiting [Unknown]
  - Weight decreased [Unknown]
  - Nausea [Recovering/Resolving]
  - Diarrhoea [Recovered/Resolved]
  - Asthenia [Unknown]
  - Walking disability [Recovering/Resolving]
